FAERS Safety Report 18983122 (Version 1)
Quarter: 2021Q1

REPORT INFORMATION
  Report Type: Spontaneous
  Country: US (occurrence: US)
  Receive Date: 20210301
  Receipt Date: 20210301
  Transmission Date: 20210420
  Serious: Yes (Other)
  Sender: FDA-Public Use
  Company Number: None

PATIENT
  Age: 64 Year
  Sex: Male
  Weight: 110.25 kg

DRUGS (8)
  1. BACLOFEN. [Concomitant]
     Active Substance: BACLOFEN
  2. SPINAL CORD STIMULATOR [Concomitant]
     Active Substance: DEVICE
  3. LISINOPRIL. [Concomitant]
     Active Substance: LISINOPRIL
  4. NORTRIPTYLINE [Concomitant]
     Active Substance: NORTRIPTYLINE
  5. ALLOPURINOL. [Concomitant]
     Active Substance: ALLOPURINOL
  6. REXALL SALINE NASAL MOISTURIZING SPRAY [SODIUM CHLORIDE] [Suspect]
     Active Substance: SODIUM CHLORIDE
     Indication: PARANASAL SINUS HYPOSECRETION
     Dosage: ?          QUANTITY:2 SPRAY(S);?
     Route: 055
     Dates: start: 20210301, end: 20210301
  7. AMLODIPINE [Concomitant]
     Active Substance: AMLODIPINE BESYLATE
  8. LYRICA [Concomitant]
     Active Substance: PREGABALIN

REACTIONS (1)
  - Sinus pain [None]

NARRATIVE: CASE EVENT DATE: 20210301
